FAERS Safety Report 24384167 (Version 2)
Quarter: 2024Q4

REPORT INFORMATION
  Report Type: Spontaneous
  Country: JP (occurrence: JP)
  Receive Date: 20241001
  Receipt Date: 20241017
  Transmission Date: 20250115
  Serious: Yes (Hospitalization)
  Sender: ASTELLAS
  Company Number: JP-ASTELLAS-2024-AER-008551

PATIENT
  Age: 7 Year

DRUGS (1)
  1. PROGRAF [Suspect]
     Active Substance: TACROLIMUS
     Indication: Heart transplant
     Route: 048

REACTIONS (2)
  - Diarrhoea [Recovered/Resolved]
  - Immunosuppressant drug level increased [Recovered/Resolved]
